FAERS Safety Report 21334508 (Version 4)
Quarter: 2022Q4

REPORT INFORMATION
  Report Type: Report from Study
  Country: CN (occurrence: CN)
  Receive Date: 20220914
  Receipt Date: 20221206
  Transmission Date: 20230113
  Serious: Yes (Death, Life-Threatening, Hospitalization, Other)
  Sender: FDA-Public Use
  Company Number: CN-BRISTOL-MYERS SQUIBB COMPANY-2022-099860

PATIENT
  Age: 73 Year
  Sex: Male
  Weight: 75 kg

DRUGS (11)
  1. AZACITIDINE [Suspect]
     Active Substance: AZACITIDINE
     Indication: Acute myeloid leukaemia
     Dosage: FOR 7 DAYS STARTING ON DAY 1 OF EACH CYCLE (75 MG/M2,1 IN 1 D)
     Route: 058
     Dates: start: 20220815, end: 20220821
  2. VENETOCLAX [Suspect]
     Active Substance: VENETOCLAX
     Indication: Acute myeloid leukaemia
     Dosage: 400 MG (400 MG,1 IN 1 D)
     Route: 048
     Dates: start: 20220815, end: 20220827
  3. VENETOCLAX [Suspect]
     Active Substance: VENETOCLAX
     Dosage: 400 MG (400 MG,1 IN 1 D)
     Route: 048
     Dates: start: 20220816, end: 20220816
  4. VENETOCLAX [Suspect]
     Active Substance: VENETOCLAX
     Route: 048
     Dates: start: 20220815, end: 20220815
  5. POTASSIUM CHLORIDE [Concomitant]
     Active Substance: POTASSIUM CHLORIDE
     Indication: Electrolyte substitution therapy
     Dosage: 10ML/3 DAYS
     Route: 065
     Dates: start: 20220807, end: 20220909
  6. MUPIROCIN [Concomitant]
     Active Substance: MUPIROCIN
     Indication: Antibiotic prophylaxis
     Dosage: 20 MG/G
     Route: 065
     Dates: start: 20220824
  7. FUFANGJIGENGPIAN [Concomitant]
     Indication: Anal fistula
     Dosage: 60 ML, 2/DAYS
     Route: 065
     Dates: start: 20220824, end: 20220904
  8. DICLOFENAC SODIUM [Concomitant]
     Active Substance: DICLOFENAC SODIUM
     Indication: Pain prophylaxis
     Dosage: 75 MG, 2/DAYS
     Route: 065
     Dates: start: 20220826, end: 20220905
  9. AZASETRON HYDROCHLORIDE [Concomitant]
     Active Substance: AZASETRON HYDROCHLORIDE
     Indication: Prophylaxis of nausea and vomiting
     Route: 065
     Dates: start: 20220817, end: 20220829
  10. GLUTATHIONE [Concomitant]
     Active Substance: GLUTATHIONE
     Indication: Prophylaxis
     Dosage: 1.8 G, EVERY 1 DAYS
     Route: 065
     Dates: start: 20220802, end: 20220904
  11. ETHAMSYLATE [Concomitant]
     Active Substance: ETHAMSYLATE
     Indication: Haemorrhage prophylaxis
     Dosage: 1000 MG, EVERY 1 DAYS
     Route: 065
     Dates: start: 20220802, end: 20220909

REACTIONS (9)
  - Pneumonia [Fatal]
  - Hypoxia [Not Recovered/Not Resolved]
  - Neutropenia [Not Recovered/Not Resolved]
  - Hypokalaemia [Unknown]
  - Bacteraemia [Unknown]
  - Fungaemia [Unknown]
  - Haematological infection [Unknown]
  - Renal failure [Unknown]
  - Hyperglycaemia [Unknown]

NARRATIVE: CASE EVENT DATE: 20220829
